FAERS Safety Report 6785988-6 (Version None)
Quarter: 2010Q2

REPORT INFORMATION
  Report Type: 
  Country: None (occurrence: None)
  Receive Date: 20100622
  Receipt Date: 20100622
  Transmission Date: 20101027
  Serious: Yes (Life-Threatening, Hospitalization)
  Sender: FDA-Public Use
  Company Number: None

PATIENT
  Sex: Male
  Weight: 88.905 kg

DRUGS (5)
  1. NAPROXEN [Suspect]
     Indication: HEADACHE
     Dosage: 500 MG AS NEEDED PO
     Route: 048
     Dates: start: 20100322, end: 20100621
  2. SUMATRIPTAN SUCCINATE [Suspect]
     Dosage: 85 MG AS NEEDED PO
     Route: 048
  3. TREXIMET [Concomitant]
  4. SUMATRIPTAN SUCCINATE [Concomitant]
  5. NAPROXEN [Concomitant]

REACTIONS (3)
  - CONVULSION [None]
  - HEADACHE [None]
  - PRODUCT SUBSTITUTION ISSUE [None]
